FAERS Safety Report 4889658-0 (Version None)
Quarter: 2006Q1

REPORT INFORMATION
  Report Type: 
  Country: None (occurrence: None)
  Receive Date: 20060120
  Receipt Date: 20060104
  Transmission Date: 20060701
  Serious: Yes (Other)
  Sender: FDA-Public Use
  Company Number: 2006BL000191

PATIENT
  Age: 49 Year
  Sex: Female
  Weight: 54 kg

DRUGS (7)
  1. DEXAMYTREX AUGENSALBE (DEXAMETHASONE/ GENTAMICIN SULFATE) [Suspect]
     Indication: CONJUNCTIVITIS
     Dosage: 1 APPLICATION; 3 TIMES A DAY; TOPICAL
     Route: 061
     Dates: start: 20051128, end: 20051201
  2. OFLOXACIN [Concomitant]
  3. BROMAZEPAM [Concomitant]
  4. MINOXIDIL  /N/A/ [Concomitant]
  5. ESTROGENS CONJUGATED W/ [Concomitant]
  6. MEDROXYPROGEST ACETATE [Concomitant]
  7. FLUOXETINE  /N/A/ [Concomitant]

REACTIONS (3)
  - BURNING SENSATION [None]
  - EYELID DISORDER [None]
  - EYELID OEDEMA [None]
